FAERS Safety Report 15190133 (Version 1)
Quarter: 2018Q3

REPORT INFORMATION
  Report Type: Spontaneous
  Country: US (occurrence: US)
  Receive Date: 20180724
  Receipt Date: 20180724
  Transmission Date: 20181010
  Serious: Yes (Hospitalization)
  Sender: FDA-Public Use
  Company Number: US-GENUS_LIFESCIENCES-USA-POI0580201800093

PATIENT
  Sex: Male

DRUGS (11)
  1. METHAMPHETAMINE [Suspect]
     Active Substance: METHAMPHETAMINE
  2. TRAMADOL. [Concomitant]
     Active Substance: TRAMADOL
  3. BUPRENORPHINE HYDROCHLORIDE. [Suspect]
     Active Substance: BUPRENORPHINE HYDROCHLORIDE
     Route: 060
     Dates: start: 2010
  4. FENTANYL. [Suspect]
     Active Substance: FENTANYL
  5. ALCOHOL. [Suspect]
     Active Substance: ALCOHOL
  6. DILAUDID [Suspect]
     Active Substance: HYDROMORPHONE HYDROCHLORIDE
  7. NICOTINE. [Concomitant]
     Active Substance: NICOTINE
  8. BUPRENORPHINE HYDROCHLORIDE. [Suspect]
     Active Substance: BUPRENORPHINE HYDROCHLORIDE
     Indication: DRUG DEPENDENCE
     Route: 060
     Dates: start: 2010
  9. OXYCODONE HCL CAPSULES [Suspect]
     Active Substance: OXYCODONE HYDROCHLORIDE
  10. BUPRENORPHINE HYDROCHLORIDE. [Suspect]
     Active Substance: BUPRENORPHINE HYDROCHLORIDE
     Route: 060
     Dates: start: 2010
  11. KLONOPIN [Concomitant]
     Active Substance: CLONAZEPAM

REACTIONS (2)
  - Localised infection [Unknown]
  - Drug abuse [Unknown]

NARRATIVE: CASE EVENT DATE: 2010
